FAERS Safety Report 9730316 (Version 1)
Quarter: 2013Q4

REPORT INFORMATION
  Report Type: Report from Study
  Country: US (occurrence: US)
  Receive Date: 20131204
  Receipt Date: 20131204
  Transmission Date: 20140711
  Serious: Yes (Other)
  Sender: FDA-Public Use
  Company Number: US-ROCHE-1310918

PATIENT
  Sex: Male

DRUGS (7)
  1. ACTIVASE [Suspect]
     Indication: PRODUCT USED FOR UNKNOWN INDICATION
     Route: 065
     Dates: start: 20131122, end: 20131122
  2. MORPHINE [Concomitant]
     Route: 065
  3. PANTOPRAZOLE [Concomitant]
     Route: 065
  4. CIPROFLOXACIN [Concomitant]
     Dosage: 5
     Route: 065
  5. NICOTINE PATCH [Concomitant]
     Route: 065
  6. HYDROCORTISONE [Concomitant]
  7. FENTANYL [Concomitant]
     Route: 065

REACTIONS (8)
  - Depression [Unknown]
  - Skin ulcer [Unknown]
  - Insomnia [Unknown]
  - Chest pain [Unknown]
  - Fall [Unknown]
  - Excoriation [Unknown]
  - Excoriation [Unknown]
  - Pain in extremity [Unknown]
